FAERS Safety Report 5380049-5 (Version None)
Quarter: 2007Q3

REPORT INFORMATION
  Report Type: 
  Country: None (occurrence: None)
  Receive Date: 20070706
  Receipt Date: 20070604
  Transmission Date: 20080115
  Serious: No
  Sender: FDA-Public Use
  Company Number: A0646179A

PATIENT
  Age: 59 Year
  Sex: Female
  Weight: 53.7 kg

DRUGS (3)
  1. TYKERB [Suspect]
     Indication: BREAST CANCER
     Dosage: 1250MG VARIABLE DOSE
     Route: 048
     Dates: start: 20070405, end: 20070416
  2. XELODA [Concomitant]
  3. CELEXA [Concomitant]

REACTIONS (3)
  - ABDOMINAL PAIN UPPER [None]
  - ANOREXIA [None]
  - DIARRHOEA [None]
